FAERS Safety Report 9216842 (Version 1)
Quarter: 2013Q2

REPORT INFORMATION
  Report Type: Spontaneous
  Country: US (occurrence: US)
  Receive Date: 20130408
  Receipt Date: 20130408
  Transmission Date: 20140414
  Serious: No
  Sender: FDA-Public Use
  Company Number: US-PFIZER INC-2013105488

PATIENT
  Age: 73 Year
  Sex: Female
  Weight: 75 kg

DRUGS (3)
  1. LEVOXYL [Suspect]
     Indication: HYPOTHYROIDISM
     Dosage: 75 UG (1.5 TABLET OF 50UG ), 1X/DAY
     Route: 048
  2. WARFARIN SODIUM [Suspect]
     Indication: ANTICOAGULANT THERAPY
     Dosage: HALF OF 10MG FOR 6 DAYS A WEEK AND 2.5MG ON 1 DAY A WEEK, ONCE DAILY
     Route: 048
  3. TOPROL-XL [Concomitant]
     Indication: ATRIAL FIBRILLATION
     Dosage: 25 MG, AS NEEDED (ONCE A MONTH OR ONCE EVERY 3 WEEKS)

REACTIONS (4)
  - Prothrombin time shortened [Unknown]
  - International normalised ratio decreased [Unknown]
  - Product quality issue [Unknown]
  - Dizziness [Unknown]
